FAERS Safety Report 5833735-4 (Version None)
Quarter: 2008Q3

REPORT INFORMATION
  Report Type: 
  Country: None (occurrence: None)
  Receive Date: 20080804
  Receipt Date: 20080804
  Transmission Date: 20090109
  Serious: Yes (Hospitalization)
  Sender: FDA-Public Use
  Company Number: None

PATIENT
  Age: 68 Year
  Sex: Male
  Weight: 80.91 kg

DRUGS (1)
  1. LOSARTAN POTASSIUM [Suspect]
     Dosage: 100 MG EVERY DAY PO
     Route: 048
     Dates: start: 20070131, end: 20080710

REACTIONS (1)
  - ANGIOEDEMA [None]
